FAERS Safety Report 7784332-5 (Version None)
Quarter: 2011Q3

REPORT INFORMATION
  Report Type: 
  Country: None (occurrence: None)
  Receive Date: 20110928
  Receipt Date: 20110917
  Transmission Date: 20111222
  Serious: Yes (Other)
  Sender: FDA-Public Use
  Company Number: PHHY2011CA42854

PATIENT
  Sex: Female

DRUGS (9)
  1. TOPIRAMATE [Concomitant]
     Dosage: UNK UKN, UNK
     Dates: start: 20110601
  2. ZOMIG [Concomitant]
     Dosage: UNK UKN, UNK
  3. VITAMIN B-12 [Concomitant]
     Dosage: UNK UKN, UNK
  4. GILENYA [Suspect]
     Indication: RELAPSING-REMITTING MULTIPLE SCLEROSIS
     Dosage: 0.5 MG, DAILY
     Route: 048
     Dates: start: 20110510
  5. VITAMIN D [Concomitant]
     Dosage: UNK UKN, UNK
  6. MAXALT                                  /USA/ [Concomitant]
     Dosage: UNK UKN, PRN
     Dates: start: 20050101
  7. INDERAL [Concomitant]
     Dosage: UNK UKN, UNK
  8. YASMIN [Concomitant]
     Dosage: UNK UKN, UNK
  9. ESCITALOPRAM [Concomitant]
     Dosage: UNK UKN, UNK
     Dates: start: 20080201

REACTIONS (4)
  - EYE PAIN [None]
  - DYSARTHRIA [None]
  - HEADACHE [None]
  - ALOPECIA [None]
